FAERS Safety Report 9395112 (Version 1)
Quarter: 2013Q3

REPORT INFORMATION
  Report Type: Spontaneous
  Country: IE (occurrence: IE)
  Receive Date: 20130711
  Receipt Date: 20130711
  Transmission Date: 20140515
  Serious: Yes (Other)
  Sender: FDA-Public Use
  Company Number: PHFR2013IE002986

PATIENT
  Age: 71 Year
  Sex: Male

DRUGS (5)
  1. CLOZARIL [Suspect]
     Route: 048
     Dates: start: 20111213
  2. CLONAZEPAM [Suspect]
     Dosage: 0.5 MG, UNK
     Route: 048
  3. ESCITALOPRAM [Suspect]
     Dosage: 10 MG, UNK
     Route: 048
  4. CLARITHROMYCIN [Suspect]
     Dosage: UNK
  5. DONEPEZIL HYDROCHLORIDE [Suspect]
     Indication: DEMENTIA
     Dosage: 10 MG, UNK
     Route: 048

REACTIONS (9)
  - Duodenal ulcer [Unknown]
  - Parkinson^s disease [Unknown]
  - Cyanosis [Unknown]
  - Gout [Unknown]
  - Lower respiratory tract infection [Unknown]
  - Pneumonia [Unknown]
  - Electrocardiogram QT prolonged [Unknown]
  - Dizziness [Unknown]
  - Cardiomyopathy [Unknown]
